FAERS Safety Report 18398369 (Version 2)
Quarter: 2020Q4

REPORT INFORMATION
  Report Type: Report from Study
  Country: None (occurrence: US)
  Receive Date: 20201019
  Receipt Date: 20201125
  Transmission Date: 20210114
  Serious: Yes (Other)
  Sender: FDA-Public Use
  Company Number: US-ABBVIE-20K-163-3561883-00

PATIENT
  Sex: Female

DRUGS (3)
  1. VITAMIN B12 [Concomitant]
     Active Substance: CYANOCOBALAMIN
     Indication: RED BLOOD CELL COUNT DECREASED
  2. HUMIRA [Suspect]
     Active Substance: ADALIMUMAB
     Indication: RHEUMATOID ARTHRITIS
     Route: 058
     Dates: start: 20200824
  3. RASUVO [Concomitant]
     Active Substance: METHOTREXATE SODIUM
     Indication: PRODUCT USED FOR UNKNOWN INDICATION

REACTIONS (38)
  - Impaired self-care [Unknown]
  - Loss of employment [Unknown]
  - Abdominal distension [Unknown]
  - Chills [Unknown]
  - Alopecia [Unknown]
  - Meniscus injury [Unknown]
  - Fluid retention [Unknown]
  - Stress [Unknown]
  - Loss of personal independence in daily activities [Unknown]
  - Nail disorder [Unknown]
  - Feeling abnormal [Unknown]
  - Fatigue [Recovering/Resolving]
  - Autoimmune disorder [Unknown]
  - Mobility decreased [Unknown]
  - Depression [Not Recovered/Not Resolved]
  - Headache [Not Recovered/Not Resolved]
  - Vision blurred [Unknown]
  - Hair texture abnormal [Unknown]
  - Musculoskeletal stiffness [Not Recovered/Not Resolved]
  - Hyperhidrosis [Unknown]
  - Nail discolouration [Unknown]
  - Muscle spasms [Unknown]
  - Constipation [Unknown]
  - Osteoporosis [Unknown]
  - Peripheral swelling [Not Recovered/Not Resolved]
  - Back pain [Unknown]
  - Pain [Unknown]
  - Discomfort [Unknown]
  - Arthralgia [Not Recovered/Not Resolved]
  - Psoriatic arthropathy [Unknown]
  - Gait disturbance [Unknown]
  - Weight increased [Unknown]
  - Breast mass [Not Recovered/Not Resolved]
  - Middle insomnia [Unknown]
  - Urinary retention [Unknown]
  - Sluggishness [Unknown]
  - Anxiety [Not Recovered/Not Resolved]
  - Thirst [Unknown]

NARRATIVE: CASE EVENT DATE: 2020
